FAERS Safety Report 4434533-9 (Version None)
Quarter: 2004Q3

REPORT INFORMATION
  Report Type: 
  Country: None (occurrence: None)
  Receive Date: 20040721
  Receipt Date: 20040322
  Transmission Date: 20050211
  Serious: No
  Sender: FDA-Public Use
  Company Number: 30018987-C602268-1

PATIENT
  Age: 35 Year
  Sex: Male

DRUGS (10)
  1. EXTRANEAL [Suspect]
     Indication: PERITONEAL DIALYSIS
     Dosage: 7.5% ICODEXTRIN 2L QD; IP
     Route: 033
     Dates: start: 20040318, end: 20040321
  2. EXTRANEAL [Suspect]
     Indication: PERITONEAL DIALYSIS
     Dosage: 7.5% ICODEXTRIN 2L QD; IP
     Route: 033
     Dates: start: 20040318, end: 20040321
  3. DIANEAL PD2 [Concomitant]
  4. PRILOSEC [Concomitant]
  5. PHOSLO [Concomitant]
  6. SODIUM BICARBONATE [Concomitant]
  7. ROCALTROL [Concomitant]
  8. LIPITOR [Concomitant]
  9. K-DUR 10 [Concomitant]
  10. INDOCIN [Concomitant]

REACTIONS (4)
  - DERMATITIS EXFOLIATIVE [None]
  - PAIN IN EXTREMITY [None]
  - RASH ERYTHEMATOUS [None]
  - RASH MACULAR [None]
